FAERS Safety Report 21797263 (Version 2)
Quarter: 2023Q2

REPORT INFORMATION
  Report Type: Report from Study
  Country: US (occurrence: US)
  Receive Date: 20221230
  Receipt Date: 20230525
  Transmission Date: 20230722
  Serious: Yes (Hospitalization)
  Sender: FDA-Public Use
  Company Number: US-ABBVIE-4253681

PATIENT
  Sex: Female

DRUGS (2)
  1. SKYRIZI [Suspect]
     Active Substance: RISANKIZUMAB-RZAA
     Indication: Psoriasis
     Dosage: FIRST ADMIN DATE: 30 NOV 2022
     Route: 058
     Dates: end: 20230328
  2. SKYRIZI [Suspect]
     Active Substance: RISANKIZUMAB-RZAA
     Dosage: FIRST ADMIN DATE 28 NOV 2022 AND LAST ADMIN DATE 2022
     Route: 058

REACTIONS (5)
  - Sepsis [Not Recovered/Not Resolved]
  - Urinary tract infection [Recovering/Resolving]
  - Infection [Recovering/Resolving]
  - Diabetes mellitus [Unknown]
  - General physical health deterioration [Unknown]

NARRATIVE: CASE EVENT DATE: 20220101
